FAERS Safety Report 16872123 (Version 1)
Quarter: 2019Q4

REPORT INFORMATION
  Report Type: Spontaneous
  Country: CA (occurrence: CA)
  Receive Date: 20191001
  Receipt Date: 20191001
  Transmission Date: 20200122
  Serious: Yes (Hospitalization)
  Sender: FDA-Public Use
  Company Number: CA-TEVA-2019-CA-1114567

PATIENT
  Age: 62 Year
  Sex: Female

DRUGS (23)
  1. ACIDOPHILUS PROBIOTIC [Concomitant]
  2. DILAUDID [Concomitant]
     Active Substance: HYDROMORPHONE HYDROCHLORIDE
  3. VITAMIN D[ERGOCALCIFEROL] [Concomitant]
  4. PREGABALIN. [Suspect]
     Active Substance: PREGABALIN
     Indication: PRODUCT USED FOR UNKNOWN INDICATION
     Dosage: 50 MILLIGRAM DAILY;
     Route: 065
  5. DEFLAZACORT [Concomitant]
     Active Substance: DEFLAZACORT
     Dosage: 18 MILLIGRAM DAILY;
  6. SALBUTAMOL [Concomitant]
     Active Substance: ALBUTEROL
  7. ASPIRIN[ACETYLSALICYLIC ACID] [Concomitant]
  8. CALCIUM [Concomitant]
     Active Substance: CALCIUM
  9. ERYTHROMYCIN. [Concomitant]
     Active Substance: ERYTHROMYCIN
     Indication: WOUND
  10. INDACATEROL MALEATE [Concomitant]
     Active Substance: INDACATEROL MALEATE
  11. PARIET [Concomitant]
     Active Substance: RABEPRAZOLE SODIUM
     Dosage: 40 MILLIGRAM DAILY;
  12. RISEDRONATE [Concomitant]
     Active Substance: RISEDRONATE SODIUM
  13. LANTUS [Concomitant]
     Active Substance: INSULIN GLARGINE
  14. NITROGLYCERIN. [Concomitant]
     Active Substance: NITROGLYCERIN
     Route: 060
  15. PANTOLOC[PANTOPRAZOLE] [Concomitant]
     Dosage: 80 MILLIGRAM DAILY;
  16. CRESTOR [Concomitant]
     Active Substance: ROSUVASTATIN CALCIUM
  17. ACETAMINOPHEN. [Concomitant]
     Active Substance: ACETAMINOPHEN
  18. COVERSYL [PERINDOPRIL ARGININE] [Concomitant]
     Active Substance: PERINDOPRIL ARGININE
  19. JANUVIA [Concomitant]
     Active Substance: SITAGLIPTIN PHOSPHATE
     Dosage: 100 MILLIGRAM DAILY;
  20. HYDROMORPHONE HYDROCHLORIDE. [Suspect]
     Active Substance: HYDROMORPHONE HYDROCHLORIDE
     Indication: PRODUCT USED FOR UNKNOWN INDICATION
     Route: 065
  21. AZITHROMYCIN ANHYDROUS. [Concomitant]
     Active Substance: AZITHROMYCIN ANHYDROUS
     Indication: PROPHYLAXIS
  22. METOPROLOL. [Concomitant]
     Active Substance: METOPROLOL
     Dosage: 25 MILLIGRAM DAILY;
  23. NEBUSAL [Concomitant]
     Active Substance: SODIUM CHLORIDE

REACTIONS (2)
  - Blood potassium abnormal [Recovered/Resolved]
  - Blood test abnormal [Recovered/Resolved]
